FAERS Safety Report 13865519 (Version 1)
Quarter: 2017Q3

REPORT INFORMATION
  Report Type: Report from Study
  Country: US (occurrence: US)
  Receive Date: 20170814
  Receipt Date: 20170814
  Transmission Date: 20171127
  Serious: No
  Sender: FDA-Public Use
  Company Number: US-AEGERION PHARMACEUTICAL, INC-AEGR002783

PATIENT
  Age: 61 Year
  Sex: Female

DRUGS (8)
  1. JUXTAPID [Suspect]
     Active Substance: LOMITAPIDE MESYLATE
     Indication: DYSLIPIDAEMIA
     Dosage: 5 MG, QD
     Route: 048
     Dates: start: 20141020, end: 20141124
  2. ASPIRIN. [Concomitant]
     Active Substance: ASPIRIN
     Indication: CORONARY ARTERY DISEASE
     Dosage: 81 MG, QD
     Route: 048
     Dates: start: 2007
  3. VITAMIN E [Concomitant]
     Active Substance: .ALPHA.-TOCOPHEROL
     Indication: DYSLIPIDAEMIA
     Dosage: 1000 IU, QD
     Route: 048
     Dates: start: 20150611
  4. JUXTAPID [Suspect]
     Active Substance: LOMITAPIDE MESYLATE
     Dosage: 10 MG, QD
     Route: 048
     Dates: start: 20150204, end: 20150611
  5. ALIROCUMAB [Concomitant]
     Active Substance: ALIROCUMAB
     Indication: DYSLIPIDAEMIA
     Dosage: 75 MG, Q2W
     Route: 058
     Dates: start: 201605
  6. JUXTAPID [Suspect]
     Active Substance: LOMITAPIDE MESYLATE
     Indication: DRUG INTOLERANCE
     Dosage: 5 MG, QD
     Route: 048
     Dates: start: 20150101, end: 20150203
  7. UBIQUINOL [Concomitant]
     Active Substance: UBIQUINOL
     Indication: NUTRITIONAL SUPPLEMENTATION
     Dosage: 100 MG, QD
     Route: 048
     Dates: start: 20150611
  8. OMEGA-3 FATTY ACIDS [Concomitant]
     Active Substance: OMEGA-3 FATTY ACIDS
     Indication: DYSLIPIDAEMIA
     Dosage: 3 TABLETS, BID
     Route: 048
     Dates: start: 20110124

REACTIONS (2)
  - Chest pain [Recovered/Resolved]
  - Off label use [Recovered/Resolved]

NARRATIVE: CASE EVENT DATE: 20141020
